FAERS Safety Report 6175134-4 (Version None)
Quarter: 2009Q2

REPORT INFORMATION
  Report Type: 
  Country: None (occurrence: None)
  Receive Date: 20090430
  Receipt Date: 20090105
  Transmission Date: 20091009
  Serious: No
  Sender: FDA-Public Use
  Company Number: US-ASTRAZENECA-2009UW00321

PATIENT
  Sex: Male

DRUGS (2)
  1. NEXIUM [Suspect]
     Dosage: UNKNOWN, AS NEEDED
     Route: 048
  2. DOXYCYCLINE [Suspect]
     Indication: ROSACEA
     Dosage: UNKNOWN
     Route: 065
     Dates: start: 20081229

REACTIONS (2)
  - DYSPEPSIA [None]
  - ROSACEA [None]
